FAERS Safety Report 20086210 (Version 4)
Quarter: 2022Q2

REPORT INFORMATION
  Report Type: Spontaneous
  Country: US (occurrence: US)
  Receive Date: 20211118
  Receipt Date: 20220520
  Transmission Date: 20220721
  Serious: No
  Sender: FDA-Public Use
  Company Number: US-PFIZER INC-202100926182

PATIENT
  Age: 60 Year
  Sex: Female

DRUGS (4)
  1. XELJANZ XR [Suspect]
     Active Substance: TOFACITINIB CITRATE
     Indication: Rheumatoid arthritis
     Dosage: 11 MG,UNK
     Dates: start: 20210519
  2. XELJANZ XR [Suspect]
     Active Substance: TOFACITINIB CITRATE
     Indication: Psoriatic arthropathy
     Dosage: 11 MG,UNK
     Dates: start: 20210816
  3. XELJANZ XR [Suspect]
     Active Substance: TOFACITINIB CITRATE
     Dosage: 11 MG,UNK
     Dates: start: 20210927
  4. XELJANZ XR [Suspect]
     Active Substance: TOFACITINIB CITRATE
     Dosage: 11 MG,UNK
     Dates: start: 20211108

REACTIONS (8)
  - Product dose omission issue [Unknown]
  - Intentional dose omission [Unknown]
  - Product dose omission issue [Unknown]
  - Product dose omission in error [Unknown]
  - Nausea [Unknown]
  - Pain in extremity [Unknown]
  - Memory impairment [Unknown]
  - Vomiting [Unknown]

NARRATIVE: CASE EVENT DATE: 20210719
